FAERS Safety Report 10854061 (Version 1)
Quarter: 2015Q1

REPORT INFORMATION
  Report Type: Spontaneous
  Country: US (occurrence: None)
  Receive Date: 20150218
  Receipt Date: 20150218
  Transmission Date: 20150721
  Serious: Yes (Other)
  Sender: FDA-Public Use
  Company Number: None

PATIENT
  Age: 42 Year
  Sex: Female
  Weight: 63.5 kg

DRUGS (1)
  1. ZYPREXA [Suspect]
     Active Substance: OLANZAPINE
     Dosage: ONE PILL, TWICE DAILY

REACTIONS (10)
  - Unevaluable event [None]
  - Mental disorder [None]
  - Insomnia [None]
  - Dry eye [None]
  - Psychotic disorder [None]
  - Suicide attempt [None]
  - Lacrimation decreased [None]
  - Feeding disorder [None]
  - Loss of libido [None]
  - Quality of life decreased [None]

NARRATIVE: CASE EVENT DATE: 20141201
